FAERS Safety Report 5535972-5 (Version None)
Quarter: 2007Q4

REPORT INFORMATION
  Report Type: 
  Country: None (occurrence: None)
  Receive Date: 20071120
  Receipt Date: 20070806
  Transmission Date: 20080405
  Serious: No
  Sender: FDA-Public Use
  Company Number: WAES 0708USA01011

PATIENT
  Age: 65 Year
  Sex: Female

DRUGS (9)
  1. JANUVIA [Suspect]
     Indication: TYPE 2 DIABETES MELLITUS
     Dosage: 50 MG/DAILY/PO ; 100 MG/DAILY/PO
     Route: 048
     Dates: start: 20070709, end: 20070701
  2. JANUVIA [Suspect]
     Indication: TYPE 2 DIABETES MELLITUS
     Dosage: 50 MG/DAILY/PO ; 100 MG/DAILY/PO
     Route: 048
     Dates: start: 20070709
  3. K-DUR 10 [Concomitant]
  4. PRILOSEC [Concomitant]
  5. EMOXIPIN [Concomitant]
  6. HYDROCHLOROTHIAZIDE [Concomitant]
  7. LEVOTHYROXINE SODIUM [Concomitant]
  8. LISINOPRIL [Concomitant]
  9. SODIUM CHLORIDE INJ [Concomitant]

REACTIONS (4)
  - ABDOMINAL DISCOMFORT [None]
  - ASTHENIA [None]
  - BLOOD SODIUM DECREASED [None]
  - ELECTROCARDIOGRAM ABNORMAL [None]
